FAERS Safety Report 9350042 (Version 1)
Quarter: 2013Q2

REPORT INFORMATION
  Report Type: Spontaneous
  Country: FR (occurrence: FR)
  Receive Date: 20130615
  Receipt Date: 20130615
  Transmission Date: 20140414
  Serious: Yes (Hospitalization)
  Sender: FDA-Public Use
  Company Number: FR-B.I. PHARMACEUTICALS,INC./RIDGEFIELD-2013-FF-01624FF

PATIENT
  Age: 66 Year
  Sex: Male

DRUGS (10)
  1. MICARDIS [Suspect]
     Route: 048
     Dates: end: 20130214
  2. MOPRAL [Suspect]
     Route: 048
     Dates: end: 20130214
  3. PARACETAMOL [Suspect]
     Dosage: 4 G
     Route: 042
     Dates: start: 20130214, end: 20130221
  4. AUGMENTIN [Suspect]
     Dosage: 6 G
     Route: 042
     Dates: start: 20130214, end: 20130221
  5. METFORMINE [Suspect]
     Route: 048
     Dates: end: 20130214
  6. AMIODARONE [Suspect]
     Dosage: 200 MG
     Route: 048
  7. DEROXAT [Suspect]
     Route: 048
     Dates: end: 20130214
  8. KALEORID [Suspect]
     Route: 048
     Dates: end: 20130214
  9. VENOFER [Suspect]
     Dosage: 100 MG/5 ML
     Route: 042
     Dates: end: 20130214
  10. LOVENOX [Suspect]
     Dosage: 0.4 U
     Route: 058
     Dates: start: 20130214, end: 20130221

REACTIONS (2)
  - Lymphopenia [Recovered/Resolved]
  - Leukopenia [Recovered/Resolved]
